FAERS Safety Report 4561854-1 (Version None)
Quarter: 2005Q1

REPORT INFORMATION
  Report Type: 
  Country: None (occurrence: None)
  Receive Date: 20050126
  Receipt Date: 20050114
  Transmission Date: 20050727
  Serious: Yes (Other)
  Sender: FDA-Public Use
  Company Number: US-MERCK-0501USA02751

PATIENT

DRUGS (1)
  1. ELSPAR [Suspect]
     Route: 065

REACTIONS (2)
  - PERIPHERAL OCCLUSIVE DISEASE [None]
  - TOE AMPUTATION [None]
